FAERS Safety Report 4946074-0 (Version None)
Quarter: 2006Q1

REPORT INFORMATION
  Report Type: 
  Country: None (occurrence: None)
  Receive Date: 20060316
  Receipt Date: 20060125
  Transmission Date: 20060701
  Serious: Yes (Disabling, Other)
  Sender: FDA-Public Use
  Company Number: GB-MERCK-0601GBR00134

PATIENT
  Age: 55 Year
  Sex: Male
  Weight: 90 kg

DRUGS (11)
  1. ZOCOR [Suspect]
     Indication: BLOOD CHOLESTEROL INCREASED
     Route: 048
     Dates: start: 20050717, end: 20060209
  2. ZOCOR [Suspect]
     Route: 048
     Dates: start: 20030701, end: 20050716
  3. ZOCOR [Suspect]
     Indication: MYOCARDIAL INFARCTION
     Route: 048
     Dates: start: 20050717, end: 20060209
  4. ZOCOR [Suspect]
     Route: 048
     Dates: start: 20030701, end: 20050716
  5. LANSOPRAZOLE [Suspect]
     Indication: GASTRITIS EROSIVE
     Route: 065
     Dates: start: 20050324, end: 20060101
  6. LANSOPRAZOLE [Suspect]
     Indication: OESOPHAGITIS
     Route: 065
     Dates: start: 20050324, end: 20060101
  7. ASPIRIN [Suspect]
     Indication: ANTIPLATELET THERAPY
     Route: 065
     Dates: start: 20030101, end: 20050324
  8. CLOPIDOGREL BISULFATE [Concomitant]
     Indication: ANTIPLATELET THERAPY
     Route: 065
     Dates: start: 20030701
  9. CLOPIDOGREL BISULFATE [Concomitant]
     Indication: STENT OCCLUSION
     Route: 065
     Dates: start: 20030701
  10. CITALOPRAM [Concomitant]
     Indication: MAJOR DEPRESSION
     Route: 065
     Dates: start: 19981201
  11. ATENOLOL [Concomitant]
     Route: 065
     Dates: end: 20050201

REACTIONS (10)
  - BALANCE DISORDER [None]
  - COORDINATION ABNORMAL [None]
  - CORONARY ARTERY DISEASE [None]
  - DYSPHAGIA [None]
  - GAIT DISTURBANCE [None]
  - GASTRITIS EROSIVE [None]
  - MUSCLE FATIGUE [None]
  - MYALGIA [None]
  - OESOPHAGITIS [None]
  - REFLUX OESOPHAGITIS [None]
